FAERS Safety Report 10456689 (Version 1)
Quarter: 2014Q3

REPORT INFORMATION
  Report Type: Spontaneous
  Country: US (occurrence: None)
  Receive Date: 20140915
  Receipt Date: 20140915
  Transmission Date: 20150326
  Serious: No
  Sender: FDA-Public Use
  Company Number: None

PATIENT
  Age: 22 Year
  Sex: Male
  Weight: 67.7 kg

DRUGS (1)
  1. AMPHETAMINE SALTS [Suspect]
     Active Substance: AMPHETAMINE ASPARTATE\AMPHETAMINE SULFATE\DEXTROAMPHETAMINE SACCHARATE\DEXTROAMPHETAMINE SULFATE
     Indication: ATTENTION DEFICIT/HYPERACTIVITY DISORDER
     Route: 048
     Dates: start: 20140712, end: 20140812

REACTIONS (8)
  - Headache [None]
  - Product substitution issue [None]
  - Dizziness [None]
  - Fatigue [None]
  - Hyperhidrosis [None]
  - Product quality issue [None]
  - No therapeutic response [None]
  - Anxiety [None]

NARRATIVE: CASE EVENT DATE: 20140807
